FAERS Safety Report 21999851 (Version 2)
Quarter: 2023Q1

REPORT INFORMATION
  Report Type: Spontaneous
  Country: CN (occurrence: None)
  Receive Date: 20230216
  Receipt Date: 20230307
  Transmission Date: 20230417
  Serious: Yes (Hospitalization)
  Sender: FDA-Public Use
  Company Number: 2023A027459

PATIENT
  Age: 65 Year
  Sex: Male

DRUGS (1)
  1. SYMBICORT [Suspect]
     Active Substance: BUDESONIDE\FORMOTEROL FUMARATE DIHYDRATE
     Indication: Emphysema
     Dosage: 160UG/4.5UG, UNKNOWN FREQUENCY UNKNOWN
     Route: 055
     Dates: start: 2022

REACTIONS (5)
  - Dyspnoea [Unknown]
  - Therapeutic product effect variable [Unknown]
  - Product packaging issue [Unknown]
  - Device issue [Unknown]
  - Device delivery system issue [Unknown]
